FAERS Safety Report 7130168-8 (Version None)
Quarter: 2010Q4

REPORT INFORMATION
  Report Type: 
  Country: None (occurrence: None)
  Receive Date: 20101112
  Receipt Date: 20101105
  Transmission Date: 20110411
  Serious: Yes (Hospitalization)
  Sender: FDA-Public Use
  Company Number: LEO-2010-00993

PATIENT
  Sex: Female

DRUGS (3)
  1. INNOHEP (TINZAPARIN SODIUM) (20000 IU (INTERNATIONAL UNIT), INJECTION [Suspect]
     Indication: PRODUCT USED FOR UNKNOWN INDICATION
     Dosage: 2 DOSAGE FORMS (14000 IU, 2 D), SUBCUTANEOUS
     Route: 058
     Dates: start: 20100101
  2. BACTRIM [Concomitant]
  3. AMLODIPINE BESYLATE [Concomitant]

REACTIONS (2)
  - ACCIDENTAL OVERDOSE [None]
  - HYPERKALAEMIA [None]
